FAERS Safety Report 15483245 (Version 1)
Quarter: 2018Q4

REPORT INFORMATION
  Report Type: Spontaneous
  Country: US (occurrence: US)
  Receive Date: 20181010
  Receipt Date: 20181010
  Transmission Date: 20190205
  Serious: Yes (Other)
  Sender: FDA-Public Use
  Company Number: None

PATIENT
  Sex: Female

DRUGS (5)
  1. MAKENA [Suspect]
     Active Substance: HYDROXYPROGESTERONE CAPROATE
     Indication: CERVICAL INCOMPETENCE
     Dosage: ?          OTHER FREQUENCY:ONCE WEEKLY;?
     Route: 030
     Dates: start: 20180823
  2. ASPIRIN. [Concomitant]
     Active Substance: ASPIRIN
  3. LEVOTHYROXINE. [Concomitant]
     Active Substance: LEVOTHYROXINE
  4. PRENATAL [Concomitant]
     Active Substance: VITAMINS
  5. CRINONE [Concomitant]
     Active Substance: PROGESTERONE

REACTIONS (1)
  - Abortion spontaneous [None]
